FAERS Safety Report 6330568-X (Version None)
Quarter: 2009Q3

REPORT INFORMATION
  Report Type: 
  Country: None (occurrence: None)
  Receive Date: 20090827
  Receipt Date: 20090821
  Transmission Date: 20100115
  Serious: Yes (Hospitalization)
  Sender: FDA-Public Use
  Company Number: US-BRISTOL-MYERS SQUIBB COMPANY-14750517

PATIENT
  Age: 15 Year
  Sex: Male
  Weight: 47 kg

DRUGS (9)
  1. SPRYCEL [Suspect]
     Indication: ACUTE LYMPHOCYTIC LEUKAEMIA
     Dosage: FIRST COURSE:26JAN09 COURSE ASSOCIATED:07JUL09 COU:6 60MG/M2
     Route: 048
     Dates: start: 20090126, end: 20090720
  2. CYCLOPHOSPHAMIDE [Suspect]
     Indication: ACUTE LYMPHOCYTIC LEUKAEMIA
     Dosage: FIRST COURSE:26JAN09 COURSE ASSOCIATED:07JUL09 COURSE:6 TOTAL:1460 MG/CYCLE
     Route: 042
  3. VINCRISTINE SULFATE [Suspect]
     Indication: ACUTE LYMPHOCYTIC LEUKAEMIA
     Dosage: COURSE:6 TOTAL: 6 MG/CYCLE
     Route: 042
  4. HYDROCORTISONE [Suspect]
     Indication: ACUTE LYMPHOCYTIC LEUKAEMIA
     Dosage: 8-15 MG  TOTAL: 15 MG/CYCLE, COURSE 6
     Route: 037
  5. CYTARABINE [Suspect]
     Indication: ACUTE LYMPHOCYTIC LEUKAEMIA
     Dosage: FIRST COURSE:26JAN09 COURSE ASSOCIATED:07JUL09 COU:6 TOTAL: 30 MG/CYCLE
     Route: 037
  6. DAUNORUBICIN HCL [Suspect]
     Indication: ACUTE LYMPHOCYTIC LEUKAEMIA
     Dosage: FIRST COURSE:26JAN09 COURSE:6 TOTAL: 130 MG/CYCLE
     Route: 042
  7. DEXAMETHASONE [Suspect]
     Indication: ACUTE LYMPHOCYTIC LEUKAEMIA
     Dosage: FIRST COURSE:26JAN09 COURSE ASSOCIATED:07JUL09 COURSE:6 TOTAL: 119 MG/CYCLE
     Route: 048
  8. METHOTREXATE [Suspect]
     Indication: ACUTE LYMPHOCYTIC LEUKAEMIA
     Dosage: FIRST COURSE:26JAN09 8-15 MG  TOTAL: 15 MG/CYCLE, COURSE 6
     Route: 037
  9. ONCASPAR [Suspect]
     Indication: ACUTE LYMPHOCYTIC LEUKAEMIA
     Dosage: DOSE: 2500 IU/M2 ON DAY 4 OF CYCLE TOTAL: 3650 MG
     Route: 030

REACTIONS (1)
  - EMBOLISM [None]
